FAERS Safety Report 10340317 (Version 2)
Quarter: 2014Q3

REPORT INFORMATION
  Report Type: Spontaneous
  Country: US (occurrence: US)
  Receive Date: 20140724
  Receipt Date: 20140730
  Transmission Date: 20150326
  Serious: Yes (Hospitalization, Other)
  Sender: FDA-Public Use
  Company Number: US-PFIZER INC-2014201729

PATIENT
  Age: 70 Year
  Sex: Female
  Weight: 84.81 kg

DRUGS (2)
  1. SUTENT [Suspect]
     Active Substance: SUNITINIB MALATE
     Indication: GASTROINTESTINAL STROMAL TUMOUR
     Dosage: UNK MG, CYCLIC
     Route: 048
     Dates: start: 20140606
  2. SUTENT [Suspect]
     Active Substance: SUNITINIB MALATE
     Dosage: UNK MG, UNK

REACTIONS (2)
  - Kidney infection [Unknown]
  - Gastroenteritis [Unknown]

NARRATIVE: CASE EVENT DATE: 2014
